FAERS Safety Report 9285874 (Version 1)
Quarter: 2013Q2

REPORT INFORMATION
  Report Type: Spontaneous
  Country: US (occurrence: None)
  Receive Date: 20130510
  Receipt Date: 20130510
  Transmission Date: 20140414
  Serious: Yes (Other)
  Sender: FDA-Public Use
  Company Number: None

PATIENT
  Age: 56 Year
  Sex: Female
  Weight: 62.6 kg

DRUGS (3)
  1. LUMIGAN [Suspect]
     Indication: OCULAR HYPERTENSION
     Dosage: 1 GH; QHS; OU
     Dates: start: 201210, end: 201302
  2. ATROVASTATIN [Concomitant]
  3. HCTZ [Concomitant]

REACTIONS (3)
  - Tinnitus [None]
  - Hearing impaired [None]
  - Eustachian tube disorder [None]
